APPROVED DRUG PRODUCT: HYDROXYZINE HYDROCHLORIDE
Active Ingredient: HYDROXYZINE HYDROCHLORIDE
Strength: 10MG
Dosage Form/Route: TABLET;ORAL
Application: A040805 | Product #001 | TE Code: AB
Applicant: HETERO LABS LTD UNIT III
Approved: May 29, 2008 | RLD: No | RS: No | Type: RX